FAERS Safety Report 5585609-4 (Version None)
Quarter: 2008Q1

REPORT INFORMATION
  Report Type: 
  Country: None (occurrence: None)
  Receive Date: 20080109
  Receipt Date: 20080104
  Transmission Date: 20080703
  Serious: Yes (Other)
  Sender: FDA-Public Use
  Company Number: US-MERCK-97040014

PATIENT
  Age: 52 Year
  Sex: Female
  Weight: 89 kg

DRUGS (13)
  1. ELAVIL [Concomitant]
     Route: 048
     Dates: start: 19901001, end: 19970101
  2. FLEXERIL [Concomitant]
     Route: 048
  3. FOSAMAX [Suspect]
     Indication: OSTEOPOROSIS
     Route: 048
     Dates: start: 19951101
  4. FOSAMAX [Suspect]
     Route: 048
     Dates: end: 20070201
  5. MIACALCIN [Concomitant]
     Route: 065
     Dates: start: 19960701
  6. MAXZIDE [Concomitant]
     Route: 065
     Dates: start: 19960701
  7. SECTRAL [Concomitant]
     Route: 065
     Dates: start: 19930601, end: 19960701
  8. VERAPAMIL [Concomitant]
     Route: 065
     Dates: start: 19940501
  9. ZANTAC [Concomitant]
     Route: 065
     Dates: start: 19940401
  10. CARNITOR [Concomitant]
     Route: 065
     Dates: start: 19940101
  11. CORTICOSTEROIDS (UNSPECIFIED) [Concomitant]
     Route: 065
  12. FORTEO [Concomitant]
     Route: 065
  13. AREDIA [Concomitant]
     Route: 065

REACTIONS (2)
  - CATARACT [None]
  - OSTEONECROSIS [None]
